FAERS Safety Report 17787016 (Version 1)
Quarter: 2020Q2

REPORT INFORMATION
  Report Type: Spontaneous
  Country: CH (occurrence: CH)
  Receive Date: 20200514
  Receipt Date: 20200514
  Transmission Date: 20200714
  Serious: Yes (Death, Other)
  Sender: FDA-Public Use
  Company Number: CH-UNITED THERAPEUTICS-UNT-2020-007250

PATIENT

DRUGS (1)
  1. REMODULIN [Suspect]
     Active Substance: TREPROSTINIL
     Indication: PRODUCT USED FOR UNKNOWN INDICATION
     Dosage: 0.063 ?G/KG, CONTINUING
     Route: 041
     Dates: start: 20170914

REACTIONS (2)
  - Product use issue [Unknown]
  - Pulmonary hypertension [Fatal]
